FAERS Safety Report 13521478 (Version 2)
Quarter: 2017Q2

REPORT INFORMATION
  Report Type: Spontaneous
  Country: CA (occurrence: CA)
  Receive Date: 20170508
  Receipt Date: 20170530
  Transmission Date: 20170830
  Serious: Yes (Other)
  Sender: FDA-Public Use
  Company Number: CA-ROCHE-1930567

PATIENT
  Age: 59 Year
  Sex: Female

DRUGS (8)
  1. HERCEPTIN [Suspect]
     Active Substance: TRASTUZUMAB
     Indication: HER-2 POSITIVE BREAST CANCER
     Route: 042
     Dates: start: 2006, end: 201405
  2. KADCYLA [Suspect]
     Active Substance: ADO-TRASTUZUMAB EMTANSINE
     Indication: HER-2 POSITIVE BREAST CANCER
     Route: 042
     Dates: start: 20170503
  3. HYDROMORPHONE [Concomitant]
     Active Substance: HYDROMORPHONE
  4. CLOXACILLIN [Concomitant]
     Active Substance: CLOXACILLIN
  5. AZITHROMYCIN ANHYDROUS. [Concomitant]
     Active Substance: AZITHROMYCIN ANHYDROUS
  6. LAPATINIB [Concomitant]
     Active Substance: LAPATINIB
  7. TAMAXIN [Concomitant]
  8. CEFADROXIL. [Concomitant]
     Active Substance: CEFADROXIL

REACTIONS (9)
  - Paraesthesia [Not Recovered/Not Resolved]
  - Viral upper respiratory tract infection [Unknown]
  - Cough [Unknown]
  - Constipation [Unknown]
  - Spinal cord infection [Not Recovered/Not Resolved]
  - Haemoptysis [Not Recovered/Not Resolved]
  - Device related infection [Not Recovered/Not Resolved]
  - Lung consolidation [Not Recovered/Not Resolved]
  - Chest X-ray abnormal [Unknown]

NARRATIVE: CASE EVENT DATE: 201608
